FAERS Safety Report 16749229 (Version 1)
Quarter: 2019Q3

REPORT INFORMATION
  Report Type: Report from Study
  Country: ES (occurrence: ES)
  Receive Date: 20190828
  Receipt Date: 20190828
  Transmission Date: 20191005
  Serious: Yes (Hospitalization)
  Sender: FDA-Public Use
  Company Number: ES-TEVA-2019-ES-1097765

PATIENT
  Age: 85 Year
  Sex: Female

DRUGS (6)
  1. EMCONCOR 5 MG COMPRIMIDOS RECUBIERTOS CON PELICULA , 30 COMPRIMIDOS [Concomitant]
     Indication: ATRIAL FIBRILLATION
     Dosage: 2.5 MILLIGRAM, 1 DAYS
     Route: 048
     Dates: start: 20090427
  2. FUROSEMIDA (1615A) [Concomitant]
     Active Substance: FUROSEMIDE
     Indication: CARDIAC FAILURE
     Dosage: 40 MILLIGRAM, 1 DAYS
     Route: 048
     Dates: start: 20130922
  3. TRAZODONA HIDROCLORURO (3160CH) [Interacting]
     Active Substance: TRAZODONE HYDROCHLORIDE
     Dosage: 100 MILLIGRAM, 1 DAYS
     Route: 048
     Dates: start: 20180119
  4. PANTOPRAZOL (7275A) [Concomitant]
     Active Substance: PANTOPRAZOLE
     Indication: PROPHYLAXIS
     Dosage: 20 MILLIGRAM, 1 DAYS
     Route: 048
     Dates: start: 20080119
  5. ORAMORPH SR SUSTAINED RELEASE [Interacting]
     Active Substance: MORPHINE SULFATE
     Indication: PAIN
     Dosage: 24 MILLIGRAM, 1 DAYS
     Route: 048
     Dates: start: 20180729, end: 20180803
  6. TRAMADOL HIDROCLORURO (2389CH) [Suspect]
     Active Substance: TRAMADOL
     Indication: PAIN
     Dosage: 100 MILLIGRAM, 1 DAYS
     Route: 048
     Dates: start: 20180119, end: 20180803

REACTIONS (2)
  - Mental status changes [Recovered/Resolved]
  - Drug interaction [Unknown]

NARRATIVE: CASE EVENT DATE: 20180729
